FAERS Safety Report 16749741 (Version 1)
Quarter: 2019Q4

REPORT INFORMATION
  Report Type: Spontaneous
  Country: US (occurrence: US)
  Receive Date: 20190827
  Receipt Date: 20190827
  Transmission Date: 20200122
  Serious: No
  Sender: FDA-Public Use
  Company Number: None

PATIENT
  Age: 6 Year
  Sex: Male
  Weight: 16.33 kg

DRUGS (1)
  1. ATOMOXETINE. [Suspect]
     Active Substance: ATOMOXETINE HYDROCHLORIDE

REACTIONS (4)
  - Inappropriate affect [None]
  - Therapy cessation [None]
  - Aggression [None]
  - Urinary incontinence [None]

NARRATIVE: CASE EVENT DATE: 20190826
